FAERS Safety Report 10365746 (Version 1)
Quarter: 2014Q3

REPORT INFORMATION
  Report Type: Spontaneous
  Country: GR (occurrence: None)
  Receive Date: 20140804
  Receipt Date: 20140804
  Transmission Date: 20150326
  Serious: Yes (Death, Other)
  Sender: FDA-Public Use
  Company Number: 2014GR00969

PATIENT
  Sex: Female

DRUGS (7)
  1. DOCETAXEL (DOCETAXEL) [Suspect]
     Active Substance: DOCETAXEL
     Indication: BREAST CANCER
     Dosage: 35MG/M2, 9 CYCLES
  2. ONDANSETRON [Concomitant]
     Active Substance: ONDANSETRON
  3. DEXAMETHASONE. [Concomitant]
     Active Substance: DEXAMETHASONE
  4. EPIRUBICIN (EPIRUBICIN HYDROCHLORIDE) INJECTION [Suspect]
     Active Substance: EPIRUBICIN
     Indication: BREAST CANCER
     Dosage: 110MG/M2 EVERY 3 WEEKS FOR 3 CYCLES
  5. CYCLOPHOSPHAMIDE (CYCLOPHOSPHAMIDE) [Suspect]
     Active Substance: CYCLOPHOSPHAMIDE
     Indication: BREAST CANCER
     Dosage: 840MG/M2 EVERY 2 WEEKS; 3 CYCLES
  6. METHOTREXATE (METHOTREXATE) [Suspect]
     Active Substance: METHOTREXATE
     Indication: BREAST CANCER
     Dosage: 57MG/M2, EVERY 2 WEEKS, 3 CYCLES
  7. FLUOROURACIL (FLUOROURACIL) [Suspect]
     Active Substance: FLUOROURACIL
     Indication: BREAST CANCER
     Dosage: 840MG/M2 EVERY 2 WEEKS; 3 CYCLES

REACTIONS (1)
  - Lung disorder [None]
